FAERS Safety Report 9649228 (Version 2)
Quarter: 2013Q4

REPORT INFORMATION
  Report Type: Spontaneous
  Country: US (occurrence: US)
  Receive Date: 20131028
  Receipt Date: 20131206
  Transmission Date: 20140711
  Serious: Yes (Hospitalization)
  Sender: FDA-Public Use
  Company Number: US-GLAXOSMITHKLINE-A0913502A

PATIENT
  Age: 77 Year
  Sex: Male
  Weight: 104.5 kg

DRUGS (1)
  1. AVANDIA [Suspect]
     Indication: DIABETES MELLITUS
     Dosage: 8MG PER DAY
     Route: 048
     Dates: start: 200302, end: 2007

REACTIONS (4)
  - Cardiac failure congestive [Unknown]
  - Cardiomegaly [Unknown]
  - Cardiovascular disorder [Unknown]
  - Cardiac disorder [Unknown]
